FAERS Safety Report 10468989 (Version 2)
Quarter: 2015Q2

REPORT INFORMATION
  Report Type: Spontaneous
  Country: BR (occurrence: BR)
  Receive Date: 20140923
  Receipt Date: 20150617
  Transmission Date: 20150821
  Serious: Yes (Other)
  Sender: FDA-Public Use
  Company Number: BR-BIOGENIDEC-2014BI097811

PATIENT
  Age: 42 Year
  Sex: Female

DRUGS (3)
  1. TYSABRI [Suspect]
     Active Substance: NATALIZUMAB
     Indication: PRIMARY PROGRESSIVE MULTIPLE SCLEROSIS
     Route: 042
     Dates: start: 2012
  2. TYSABRI [Suspect]
     Active Substance: NATALIZUMAB
     Indication: MULTIPLE SCLEROSIS
     Route: 042
     Dates: start: 2012
  3. ALPROLIX [Concomitant]
     Active Substance: EFTRENONACOG ALFA

REACTIONS (4)
  - Seizure [Unknown]
  - Product use issue [Not Recovered/Not Resolved]
  - Confusional state [Unknown]
  - Pachymeningitis [Unknown]

NARRATIVE: CASE EVENT DATE: 2012
